FAERS Safety Report 4461775-9 (Version None)
Quarter: 2004Q3

REPORT INFORMATION
  Report Type: 
  Country: None (occurrence: None)
  Receive Date: 20040929
  Receipt Date: 20031014
  Transmission Date: 20050211
  Serious: No
  Sender: FDA-Public Use
  Company Number: US-GLAXOSMITHKLINE-A0430283A

PATIENT
  Age: 52 Year
  Sex: Female

DRUGS (3)
  1. SEREVENT [Suspect]
     Indication: ILL-DEFINED DISORDER
     Route: 055
  2. EFFEXOR [Concomitant]
  3. KLONOPIN [Concomitant]

REACTIONS (3)
  - FATIGUE [None]
  - PYREXIA [None]
  - SALIVARY GLAND ENLARGEMENT [None]
